FAERS Safety Report 16211852 (Version 1)
Quarter: 2019Q2

REPORT INFORMATION
  Report Type: Spontaneous
  Country: IT (occurrence: IT)
  Receive Date: 20190418
  Receipt Date: 20190418
  Transmission Date: 20190711
  Serious: Yes (Hospitalization)
  Sender: FDA-Public Use
  Company Number: IT-ASTRAZENECA-2019SE57158

PATIENT
  Age: 83 Year
  Sex: Male

DRUGS (8)
  1. LASIX [Concomitant]
     Active Substance: FUROSEMIDE
     Dosage: 1.0DF UNKNOWN
     Route: 048
  2. BRILIQUE [Suspect]
     Active Substance: TICAGRELOR
     Indication: ATRIAL FIBRILLATION
     Route: 048
     Dates: start: 20181124, end: 20181212
  3. AMIODAR [Concomitant]
     Active Substance: AMIODARONE
     Dosage: 1.0DF UNKNOWN
     Route: 048
  4. EUTIROX [Concomitant]
     Active Substance: LEVOTHYROXINE SODIUM
     Dosage: 1.0DF UNKNOWN
     Route: 048
  5. CARDIOASPIRIN [Suspect]
     Active Substance: ASPIRIN
     Route: 048
  6. ANTRA [Concomitant]
     Active Substance: OMEPRAZOLE
     Dosage: 2.0DF UNKNOWN
     Route: 048
  7. CARDICOR [Concomitant]
     Active Substance: BISOPROLOL
     Dosage: 1.0DF UNKNOWN
     Route: 048
  8. TORVAST [Concomitant]
     Active Substance: ATORVASTATIN
     Dosage: 1.0DF UNKNOWN
     Route: 048

REACTIONS (3)
  - Gastric haemorrhage [Recovering/Resolving]
  - Drug interaction [Recovering/Resolving]
  - Anaemia [Recovering/Resolving]

NARRATIVE: CASE EVENT DATE: 20181212
